FAERS Safety Report 20830906 (Version 1)
Quarter: 2022Q2

REPORT INFORMATION
  Report Type: Spontaneous
  Country: ID (occurrence: ID)
  Receive Date: 20220515
  Receipt Date: 20220515
  Transmission Date: 20220721
  Serious: Yes (Hospitalization)
  Sender: FDA-Public Use
  Company Number: ID-LUPIN PHARMACEUTICALS INC.-2022-07003

PATIENT
  Age: 30 Year
  Sex: Male

DRUGS (5)
  1. AZITHROMYCIN [Suspect]
     Active Substance: AZITHROMYCIN
     Indication: COVID-19
     Dosage: 500 MG, QD
     Route: 048
  2. ISOPRINOSINE [Suspect]
     Active Substance: INOSINE PRANOBEX
     Indication: COVID-19
     Dosage: 500 MG, TID
     Route: 048
  3. LOPINAVIR\RITONAVIR [Suspect]
     Active Substance: LOPINAVIR\RITONAVIR
     Indication: COVID-19
     Dosage: UNK, BID
     Route: 048
  4. FONDAPARINUX [Concomitant]
     Active Substance: FONDAPARINUX
     Indication: Prophylaxis
     Dosage: 2.5 MG, UNK  FOR THREE DAYS
     Route: 058
  5. FONDAPARINUX [Concomitant]
     Active Substance: FONDAPARINUX
     Dosage: 7.5 MG, QD
     Route: 058

REACTIONS (2)
  - Drug ineffective for unapproved indication [Unknown]
  - Off label use [Unknown]
